FAERS Safety Report 7627826-5 (Version None)
Quarter: 2011Q3

REPORT INFORMATION
  Report Type: 
  Country: None (occurrence: None)
  Receive Date: 20110721
  Receipt Date: 20110711
  Transmission Date: 20111222
  Serious: Yes (Hospitalization, Other)
  Sender: FDA-Public Use
  Company Number: US-MPIJNJ-2011-00626

PATIENT
  Sex: Male
  Weight: 100.91 kg

DRUGS (8)
  1. CYCLOPHOSPHAMIDE [Suspect]
     Indication: MANTLE CELL LYMPHOMA
     Dosage: UNK
     Dates: start: 20070801, end: 20071122
  2. SIMVASTATIN [Concomitant]
     Indication: PRODUCT USED FOR UNKNOWN INDICATION
     Dosage: UNK
     Dates: start: 20100726, end: 20110114
  3. DOXORUBICIN HCL [Suspect]
     Indication: MANTLE CELL LYMPHOMA
     Dosage: UNK
     Dates: start: 20070801, end: 20071120
  4. DEXAMETHASONE [Suspect]
     Indication: MANTLE CELL LYMPHOMA
     Dosage: UNK
     Dates: start: 20070801, end: 20071122
  5. RITUXIMAB [Suspect]
     Indication: MANTLE CELL LYMPHOMA
     Dosage: 375 MG/M2, UNK
     Dates: start: 20071201, end: 20080101
  6. RITUXIMAB [Suspect]
     Dosage: 375 MG/M2, CYCLIC
     Route: 042
     Dates: start: 20101215, end: 20101215
  7. VINCRISTINE [Suspect]
     Indication: MANTLE CELL LYMPHOMA
     Dosage: UNK
     Dates: start: 20070801, end: 20071121
  8. VELCADE [Suspect]
     Indication: MANTLE CELL LYMPHOMA
     Dosage: UNK
     Dates: start: 20070801, end: 20071122

REACTIONS (2)
  - PERIPHERAL T-CELL LYMPHOMA UNSPECIFIED [None]
  - NEOPLASM MALIGNANT [None]
